FAERS Safety Report 14658160 (Version 1)
Quarter: 2018Q1

REPORT INFORMATION
  Report Type: Spontaneous
  Country: FI (occurrence: FI)
  Receive Date: 20180320
  Receipt Date: 20180320
  Transmission Date: 20180509
  Serious: Yes (Hospitalization)
  Sender: FDA-Public Use
  Company Number: FI-B.I. PHARMACEUTICALS,INC./RIDGEFIELD-2018-12-000983

PATIENT
  Age: 77 Year
  Sex: Female

DRUGS (5)
  1. PERINDOPRIL KRKA [Concomitant]
     Indication: HYPERTENSION
     Dosage: 8,MG,DAILY
     Route: 048
  2. METFORMIN [Concomitant]
     Active Substance: METFORMIN HYDROCHLORIDE
     Indication: TYPE 2 DIABETES MELLITUS
     Dosage: 2,G,DAILY
     Route: 048
  3. ATORVASTATIN [Concomitant]
     Active Substance: ATORVASTATIN
     Indication: PRODUCT USED FOR UNKNOWN INDICATION
     Dosage: 20,MG,DAILY
     Route: 048
  4. BISOPROLOL ACCORD [Concomitant]
     Active Substance: BISOPROLOL
     Indication: ARRHYTHMIA
     Dosage: 2.5,MG,DAILY
     Route: 048
  5. PRADAXA [Suspect]
     Active Substance: DABIGATRAN ETEXILATE MESYLATE
     Indication: ATRIAL FIBRILLATION
     Dosage: 300,MG,DAILY
     Route: 048
     Dates: start: 20170816, end: 20180301

REACTIONS (6)
  - Nausea [Not Recovered/Not Resolved]
  - Epistaxis [Not Recovered/Not Resolved]
  - Therapeutic response increased [Not Recovered/Not Resolved]
  - Dizziness [Not Recovered/Not Resolved]
  - Anticoagulation drug level increased [Not Recovered/Not Resolved]
  - Cerebral haemorrhage [Not Recovered/Not Resolved]

NARRATIVE: CASE EVENT DATE: 20180301
